FAERS Safety Report 7352019-9 (Version None)
Quarter: 2011Q1

REPORT INFORMATION
  Report Type: 
  Country: None (occurrence: None)
  Receive Date: 20110315
  Receipt Date: 20110304
  Transmission Date: 20110831
  Serious: Yes (Other)
  Sender: FDA-Public Use
  Company Number: ES-CELGENEUS-144-C5013-11030669

PATIENT
  Sex: Male
  Weight: 79.6 kg

DRUGS (15)
  1. ATORVASTATIN [Concomitant]
     Indication: ANGINA PECTORIS
     Dosage: 40 MILLIGRAM
     Route: 048
     Dates: start: 20110114
  2. ARANESP [Concomitant]
     Dosage: 150 MICROGRAM
     Route: 058
     Dates: start: 20110124
  3. DEXAMETHASONE [Suspect]
     Indication: MULTIPLE MYELOMA
     Dosage: 20 MILLIGRAM
     Route: 065
     Dates: start: 20100218
  4. COLCHIMAX [Concomitant]
     Indication: PAIN PROPHYLAXIS
     Dosage: .5 MILLIGRAM
     Route: 048
     Dates: start: 20110114
  5. CC-5013 [Suspect]
     Dosage: 25 MILLIGRAM
     Route: 048
     Dates: start: 20110124, end: 20110207
  6. DEXAMETHASONE [Suspect]
     Dosage: 10 MILLIGRAM
     Route: 051
     Dates: start: 20110228
  7. RAMIPRIL [Concomitant]
     Indication: ANGINA PECTORIS
     Dosage: 2.5 MILLIGRAM
     Route: 048
     Dates: start: 20110114
  8. DEXAMETHASONE [Suspect]
     Dosage: 20 MILLIGRAM
     Route: 065
     Dates: start: 20110124, end: 20110207
  9. EMCONCOR [Concomitant]
     Indication: ANGINA PECTORIS
     Dosage: 2.5 MILLIGRAM
     Route: 048
     Dates: start: 20110111
  10. ALLOPURINOL [Concomitant]
     Dosage: 300 MILLIGRAM
     Route: 048
     Dates: start: 20110114
  11. POTASSIUM [Concomitant]
     Dosage: 30 MILLILITER
     Route: 048
     Dates: start: 20110207
  12. CC-5013 [Suspect]
     Indication: MULTIPLE MYELOMA
     Dosage: 25 MILLIGRAM
     Route: 048
     Dates: start: 20100218
  13. RANITIDINE [Concomitant]
     Indication: PROPHYLAXIS
     Dosage: 300 MILLIGRAM
     Route: 048
     Dates: start: 20110114
  14. CALCIUM [Concomitant]
     Dosage: 500 MILLIGRAM
     Route: 048
     Dates: start: 20110114
  15. CLEXANE [Concomitant]
     Indication: PROPHYLAXIS
     Dosage: 60 MILLIGRAM
     Route: 058
     Dates: start: 20110124, end: 20110207

REACTIONS (6)
  - ATRIAL FIBRILLATION [None]
  - PANCREATITIS [None]
  - MULTIPLE MYELOMA [None]
  - NEOPLASM MALIGNANT [None]
  - MYELODYSPLASTIC SYNDROME [None]
  - ANGINA PECTORIS [None]
